FAERS Safety Report 15735820 (Version 1)
Quarter: 2018Q4

REPORT INFORMATION
  Report Type: Report from Study
  Country: DK (occurrence: DK)
  Receive Date: 20181218
  Receipt Date: 20181218
  Transmission Date: 20190205
  Serious: Yes (Death, Hospitalization, Other)
  Sender: FDA-Public Use
  Company Number: DK-RECRO GAINESVILLE LLC-REPH-2018-000086

PATIENT

DRUGS (2)
  1. VERAPAMIL HYDROCHLORIDE EXTENDED RELEASE [Suspect]
     Active Substance: VERAPAMIL HYDROCHLORIDE
     Dosage: 24000 MG, ONE TIME DOSE
  2. ESCITALOPRAM [Concomitant]
     Active Substance: ESCITALOPRAM OXALATE
     Indication: PRODUCT USED FOR UNKNOWN INDICATION
     Dosage: 280 MG, UNK

REACTIONS (16)
  - Muscle twitching [Unknown]
  - Hyperglycaemia [Unknown]
  - Blood creatinine increased [Unknown]
  - Blood lactic acid increased [Unknown]
  - Intentional overdose [Fatal]
  - Calcium ionised decreased [Unknown]
  - Carbon dioxide increased [Unknown]
  - Bundle branch block left [Unknown]
  - Somnolence [Unknown]
  - Muscle spasms [Unknown]
  - Acidosis [Unknown]
  - Base excess increased [Unknown]
  - Atrial fibrillation [Unknown]
  - Anuria [Unknown]
  - Hypotension [Unknown]
  - Heart rate decreased [Unknown]
